FAERS Safety Report 11764667 (Version 1)
Quarter: 2015Q4

REPORT INFORMATION
  Report Type: Spontaneous
  Country: US (occurrence: US)
  Receive Date: 20151120
  Receipt Date: 20151120
  Transmission Date: 20160304
  Serious: No
  Sender: FDA-Public Use
  Company Number: US-ELI_LILLY_AND_COMPANY-US201212008202

PATIENT
  Age: 53 Year
  Sex: Female

DRUGS (4)
  1. FORTEO [Suspect]
     Active Substance: TERIPARATIDE
     Indication: OSTEOPOROSIS
     Dosage: 20 UG, QD
     Dates: start: 20121202
  2. FORTEO [Suspect]
     Active Substance: TERIPARATIDE
     Dosage: 20 UG, QD
     Dates: end: 20130201
  3. FISH OIL [Concomitant]
     Active Substance: FISH OIL
  4. ADVIL [Concomitant]
     Active Substance: IBUPROFEN

REACTIONS (16)
  - Heart rate increased [Unknown]
  - Weight bearing difficulty [Unknown]
  - Balance disorder [Unknown]
  - Palpitations [Recovering/Resolving]
  - Blood calcium increased [Unknown]
  - Anxiety [Unknown]
  - Melanocytic naevus [Unknown]
  - Back pain [Unknown]
  - Feeling abnormal [Unknown]
  - Depression [Unknown]
  - Sinusitis [Unknown]
  - Pneumonia [Recovered/Resolved]
  - Nasopharyngitis [Not Recovered/Not Resolved]
  - Contusion [Unknown]
  - Immune system disorder [Unknown]
  - Headache [Unknown]

NARRATIVE: CASE EVENT DATE: 201212
